FAERS Safety Report 15689810 (Version 1)
Quarter: 2018Q4

REPORT INFORMATION
  Report Type: Spontaneous
  Country: NZ (occurrence: NZ)
  Receive Date: 20181205
  Receipt Date: 20181205
  Transmission Date: 20190205
  Serious: Yes (Hospitalization, Other)
  Sender: FDA-Public Use
  Company Number: NZ-ABBVIE-18S-118-2572060-00

PATIENT
  Age: 49 Year
  Sex: Male
  Weight: 73 kg

DRUGS (1)
  1. VIEKIRA PAK [Suspect]
     Active Substance: DASABUVIR\OMBITASVIR\PARITAPREVIR\RITONAVIR
     Indication: CHRONIC HEPATITIS C
     Route: 048
     Dates: start: 2018

REACTIONS (11)
  - Loss of consciousness [Unknown]
  - Seizure [Unknown]
  - Clonus [Unknown]
  - Headache [Unknown]
  - Memory impairment [Unknown]
  - Vomiting [Unknown]
  - Suicidal ideation [Unknown]
  - Pancreatitis [Unknown]
  - Suicide attempt [Unknown]
  - Postictal state [Unknown]
  - Headache [Unknown]

NARRATIVE: CASE EVENT DATE: 2018
